FAERS Safety Report 5035068-5 (Version None)
Quarter: 2006Q2

REPORT INFORMATION
  Report Type: 
  Country: None (occurrence: None)
  Receive Date: 20060622
  Receipt Date: 20060622
  Transmission Date: 20061013
  Serious: Yes (Death)
  Sender: FDA-Public Use
  Company Number: None

PATIENT
  Sex: Female

DRUGS (2)
  1. DOXIL [Suspect]
     Indication: OVARIAN DISORDER
     Dosage: 50 MG/M2 Q 28 D IV
     Route: 042
     Dates: start: 20051010
  2. ATRASENTAN [Suspect]
     Indication: OVARIAN DISORDER
     Dosage: 10 MG QD PO
     Route: 048
     Dates: start: 20051010, end: 20051018

REACTIONS (2)
  - DISEASE PROGRESSION [None]
  - REFUSAL OF TREATMENT BY PATIENT [None]
